FAERS Safety Report 13299029 (Version 3)
Quarter: 2017Q1

REPORT INFORMATION
  Report Type: Spontaneous
  Country: CH (occurrence: CH)
  Receive Date: 20170306
  Receipt Date: 20170323
  Transmission Date: 20170428
  Serious: Yes (Life-Threatening, Hospitalization, Other)
  Sender: FDA-Public Use
  Company Number: CH-GILEAD-2017-0260856

PATIENT
  Age: 75 Year
  Sex: Male
  Weight: 57.8 kg

DRUGS (12)
  1. ZYDELIG [Suspect]
     Active Substance: IDELALISIB
     Indication: CHRONIC LYMPHOCYTIC LEUKAEMIA
     Dosage: 150 MG, BID
     Route: 048
     Dates: start: 201507, end: 201604
  2. ZYDELIG [Suspect]
     Active Substance: IDELALISIB
     Dosage: 150 MG BID
     Route: 048
     Dates: start: 20160509, end: 201606
  3. RITUXIMAB [Concomitant]
     Active Substance: RITUXIMAB
     Indication: CHRONIC LYMPHOCYTIC LEUKAEMIA
     Dosage: UNK
     Dates: start: 201507, end: 201606
  4. NEXIUM [Concomitant]
     Active Substance: ESOMEPRAZOLE MAGNESIUM
     Dosage: 40 MG, QD
     Route: 048
  5. PRIVIGEN [Concomitant]
     Active Substance: HUMAN IMMUNOGLOBULIN G
     Dosage: UNK, Q1MONTH
  6. EXJADE [Concomitant]
     Active Substance: DEFERASIROX
     Dosage: 500 MG, TID
     Route: 048
  7. ACIDUM FOLICUM STREULI [Concomitant]
     Active Substance: FOLIC ACID
     Dosage: 5 MG, QD
     Route: 048
  8. NOVALGIN [Concomitant]
     Active Substance: METAMIZOLE SODIUM
     Dosage: 500 MG, QID
     Route: 048
  9. MYCOSTATIN [Concomitant]
     Active Substance: NYSTATIN
     Dosage: 100000 U/ML, QID
     Route: 048
  10. VALTREX [Concomitant]
     Active Substance: VALACYCLOVIR HYDROCHLORIDE
     Dosage: 200 MG, BID
     Route: 048
  11. BACTRIM [Concomitant]
     Active Substance: SULFAMETHOXAZOLE\TRIMETHOPRIM
     Dosage: 800/160MG
     Route: 048
  12. SPIRICORT [Concomitant]
     Active Substance: PREDNISOLONE
     Dosage: 20 MG, 1/2X DAY
     Route: 048

REACTIONS (5)
  - Pneumonia [Unknown]
  - Mastoiditis [Recovered/Resolved]
  - Bacterial sepsis [Recovered/Resolved]
  - Pneumonia pseudomonal [Recovered/Resolved]
  - Infective exacerbation of bronchiectasis [Unknown]

NARRATIVE: CASE EVENT DATE: 201604
